FAERS Safety Report 6140369-3 (Version None)
Quarter: 2009Q2

REPORT INFORMATION
  Report Type: 
  Country: None (occurrence: None)
  Receive Date: 20090401
  Receipt Date: 20090318
  Transmission Date: 20091009
  Serious: Yes (Death, Hospitalization)
  Sender: FDA-Public Use
  Company Number: HU-GENENTECH-270225

PATIENT
  Sex: Male

DRUGS (2)
  1. BEVACIZUMAB [Suspect]
     Indication: RENAL CELL CARCINOMA
     Dosage: 10 MG, 2/WEEK
     Route: 042
     Dates: start: 20080925, end: 20081009
  2. INTERFERON ALFA [Suspect]
     Indication: RENAL CELL CARCINOMA
     Dosage: 3 A?G, UNK
     Route: 058
     Dates: start: 20080925, end: 20081009

REACTIONS (2)
  - ANOREXIA [None]
  - ASTHENIA [None]
